FAERS Safety Report 4644852-9 (Version None)
Quarter: 2005Q2

REPORT INFORMATION
  Report Type: 
  Country: None (occurrence: None)
  Receive Date: 20050422
  Receipt Date: 20050413
  Transmission Date: 20051028
  Serious: Yes (Hospitalization, Other)
  Sender: FDA-Public Use
  Company Number: USA-2002-0001484

PATIENT
  Age: 46 Year
  Sex: Female
  Weight: 114.3 kg

DRUGS (44)
  1. OXYCONTIN [Suspect]
     Indication: PAIN
     Dosage: SEE IMAGE
     Route: 048
     Dates: start: 20000201
  2. OXYCONTIN [Suspect]
     Indication: PAIN
     Dosage: SEE IMAGE
     Route: 048
     Dates: start: 20000911
  3. DILANTIN [Concomitant]
  4. GLUCOPAGE ^ARON^ (METFORMIN HYDROCHLORIDE) [Concomitant]
  5. BUSPAR [Concomitant]
  6. NYSTATIN [Concomitant]
  7. TRICOR [Concomitant]
  8. EFFEXOR [Concomitant]
  9. HYZAAR [Concomitant]
  10. HUMULIN N [Concomitant]
  11. PREMPHASE (PREMARIN;CYCRIN 14/14) [Concomitant]
  12. FAMVIR [Concomitant]
  13. ZYRTEC [Concomitant]
  14. HUMULIN R [Concomitant]
  15. HUMALOG [Concomitant]
  16. TEMAZEPAM [Concomitant]
  17. DIFLUCAN [Concomitant]
  18. LOTRISONE (CLOTRIMAZOLE BETAMETHASONE DIPROPIONATE) [Concomitant]
  19. WELLBUTRIN [Concomitant]
  20. TRILEPTAL [Concomitant]
  21. TOBRADEX (DEXAMETHASONE) [Concomitant]
  22. SONATA [Concomitant]
  23. ACTIQ [Concomitant]
  24. DENAVIR (PENCICLOVIR) [Concomitant]
  25. PATANOL [Concomitant]
  26. BACTROBAN (MUPIROCIN) [Concomitant]
  27. ROXICET [Concomitant]
  28. PERCOCET [Concomitant]
  29. CEPHALEXIN [Concomitant]
  30. LIDA-MANTLE (LIDOCAINE) [Concomitant]
  31. CLOBETASOL (CLOBETASOL) [Concomitant]
  32. FLUOXETINE [Concomitant]
  33. COBALMYCIN (TETRACYCLINE) [Concomitant]
  34. RHINOCORT [Concomitant]
  35. AYGESTIN [Concomitant]
  36. AUGMENTIN '125' [Concomitant]
  37. THYRAR (LEVOTHYROXINE) [Concomitant]
  38. ATIVAN [Concomitant]
  39. VITAMIN E [Concomitant]
  40. MULTIVITAMINS  (ASCORBIC ACID, ERGOCALCIFEROL, FOLIC ACID, NICOTINAMID [Concomitant]
  41. RIBOFLAVIN, THIAMINE HYDROCHLORIDE) [Concomitant]
  42. KEFLEX [Concomitant]
  43. ADVAIR DISKUS (FLUTICASONE PROPIONATE) [Concomitant]
  44. RESTORIL [Concomitant]

REACTIONS (39)
  - ALLERGY TEST POSITIVE [None]
  - ANXIETY [None]
  - ASTHENIA [None]
  - CELLULITIS [None]
  - DEPRESSION [None]
  - DIABETIC ULCER [None]
  - DIARRHOEA [None]
  - DIVERTICULITIS [None]
  - DRUG DEPENDENCE [None]
  - DRUG INEFFECTIVE [None]
  - DRUG WITHDRAWAL SYNDROME [None]
  - EAR PAIN [None]
  - ENURESIS [None]
  - EYE IRRITATION [None]
  - FAECAL INCONTINENCE [None]
  - FUNGAL INFECTION [None]
  - HOT FLUSH [None]
  - MOOD SWINGS [None]
  - MUSCLE SPASMS [None]
  - NEPHROLITHIASIS [None]
  - NEURODERMATITIS [None]
  - NIGHT SWEATS [None]
  - OEDEMA PERIPHERAL [None]
  - OVARIAN CYST [None]
  - PAIN [None]
  - PAIN IN EXTREMITY [None]
  - PRURITUS [None]
  - RASH [None]
  - RECTAL HAEMORRHAGE [None]
  - SEDATION [None]
  - SKIN INDURATION [None]
  - SKIN LESION [None]
  - SKIN STRIAE [None]
  - SOMNOLENCE [None]
  - SPEECH DISORDER [None]
  - STRESS INCONTINENCE [None]
  - SUICIDAL IDEATION [None]
  - URINARY INCONTINENCE [None]
  - WEIGHT INCREASED [None]
